FAERS Safety Report 4606500-3 (Version None)
Quarter: 2005Q2

REPORT INFORMATION
  Report Type: 
  Country: None (occurrence: None)
  Receive Date: 20050223
  Receipt Date: 20041018
  Transmission Date: 20051028
  Serious: Yes (Life-Threatening, Hospitalization, Other)
  Sender: FDA-Public Use
  Company Number: WAES  0410USA02580

PATIENT
  Age: 69 Year
  Sex: Male
  Weight: 75.2971 kg

DRUGS (5)
  1. ZOCOR [Suspect]
     Indication: HYPERLIPIDAEMIA
     Dosage: 80 MG/DAILY/PO
     Route: 048
     Dates: start: 20040814, end: 20040919
  2. ZOCOR [Suspect]
     Indication: HYPERLIPIDAEMIA
     Dates: end: 20040813
  3. PEPCID [Concomitant]
  4. PRINIVIL [Concomitant]
  5. ASPIRIN [Concomitant]

REACTIONS (2)
  - RENAL FAILURE [None]
  - RHABDOMYOLYSIS [None]
